FAERS Safety Report 9625758 (Version 1)
Quarter: 2013Q4

REPORT INFORMATION
  Report Type: Spontaneous
  Country: GB (occurrence: GB)
  Receive Date: 20131016
  Receipt Date: 20131016
  Transmission Date: 20140711
  Serious: Yes (Other)
  Sender: FDA-Public Use
  Company Number: PHHY2013GB111999

PATIENT
  Age: 12 Year
  Sex: Female

DRUGS (3)
  1. METHOTREXATE SODIUM [Suspect]
     Indication: JUVENILE IDIOPATHIC ARTHRITIS
     Dosage: UNK
     Route: 048
  2. METHOTREXATE SODIUM [Suspect]
     Dosage: UNK (INJECTION TO THE ARM, WEEKLY)
  3. INFLIXIMAB [Concomitant]
     Indication: INFLAMMATION
     Dosage: UNK (ONCE EVERY 8 WEEKS)

REACTIONS (2)
  - Uveitis [Unknown]
  - Malaise [Unknown]
